FAERS Safety Report 10219207 (Version 1)
Quarter: 2014Q2

REPORT INFORMATION
  Report Type: Report from Study
  Country: SI (occurrence: SI)
  Receive Date: 20140605
  Receipt Date: 20140605
  Transmission Date: 20141212
  Serious: Yes (Other)
  Sender: FDA-Public Use
  Company Number: SI-ASTELLAS-2014US006279

PATIENT
  Sex: 0

DRUGS (3)
  1. ERLOTINIB [Suspect]
     Indication: NON-SMALL CELL LUNG CANCER
     Dosage: ON DAYS 5 TO 15 (150 MG, 1 IN 3 WK)
     Route: 065
  2. GEMCITABINE [Suspect]
     Indication: NON-SMALL CELL LUNG CANCER
     Dosage: ON DAYS 1 AND 4 (1250 MG/M2, 1 IN 3 WK)
     Route: 065
  3. CISPLATIN [Suspect]
     Indication: NON-SMALL CELL LUNG CANCER
     Dosage: ON DAY 2 (75 MG/M2, 1 IN 3 WK)
     Route: 065

REACTIONS (1)
  - Neutropenia [Unknown]
